FAERS Safety Report 20161919 (Version 1)
Quarter: 2021Q4

REPORT INFORMATION
  Report Type: Report from Study
  Country: US (occurrence: US)
  Receive Date: 20211208
  Receipt Date: 20211208
  Transmission Date: 20220303
  Serious: Yes (Hospitalization, Other)
  Sender: FDA-Public Use
  Company Number: US-BRISTOL-MYERS SQUIBB COMPANY-BMS-2021-130090

PATIENT
  Age: 82 Year
  Sex: Female
  Weight: 85.3 kg

DRUGS (2)
  1. NIVOLUMAB [Suspect]
     Active Substance: NIVOLUMAB
     Indication: Renal cell carcinoma
     Dosage: 1002 MILLIGRAM
     Route: 042
     Dates: start: 20210721, end: 20210922
  2. IPILIMUMAB [Suspect]
     Active Substance: IPILIMUMAB
     Indication: Renal cell carcinoma
     Dosage: 334 MILLIGRAM
     Route: 065
     Dates: start: 20210721, end: 20210922

REACTIONS (3)
  - Pneumonitis [Unknown]
  - Atrial fibrillation [Unknown]
  - Hypoxia [Unknown]

NARRATIVE: CASE EVENT DATE: 20211021
